FAERS Safety Report 4276614-9 (Version None)
Quarter: 2004Q1

REPORT INFORMATION
  Report Type: 
  Country: None (occurrence: None)
  Receive Date: 20040120
  Receipt Date: 20040109
  Transmission Date: 20041129
  Serious: Yes (Hospitalization)
  Sender: FDA-Public Use
  Company Number: US-JNJFOC-20040101955

PATIENT
  Sex: Female

DRUGS (2)
  1. TOPAMAX [Suspect]
     Indication: BIPOLAR DISORDER
     Dosage: 200 MG
  2. FOSAMAX [Concomitant]

REACTIONS (2)
  - GASTROINTESTINAL DISORDER [None]
  - NEPHROLITHIASIS [None]
